FAERS Safety Report 13346265 (Version 2)
Quarter: 2017Q2

REPORT INFORMATION
  Report Type: Spontaneous
  Country: US (occurrence: US)
  Receive Date: 20170317
  Receipt Date: 20170424
  Transmission Date: 20170830
  Serious: Yes (Hospitalization, Other)
  Sender: FDA-Public Use
  Company Number: US-GLAXOSMITHKLINE-US2017GSK037708

PATIENT
  Age: 65 Year
  Sex: Female

DRUGS (5)
  1. FLOLAN [Suspect]
     Active Substance: EPOPROSTENOL SODIUM
     Indication: PULMONARY ARTERIAL HYPERTENSION
     Dosage: 36 DF, CO
     Dates: start: 20141212
  2. FLOLAN [Suspect]
     Active Substance: EPOPROSTENOL SODIUM
     Dosage: 36 DF, CO
     Route: 042
  3. ADEMPAS [Concomitant]
     Active Substance: RIOCIGUAT
  4. FLOLAN [Suspect]
     Active Substance: EPOPROSTENOL SODIUM
     Indication: PULMONARY ARTERIAL HYPERTENSION
     Dosage: UNK
     Dates: start: 20170201
  5. FLOLAN [Suspect]
     Active Substance: EPOPROSTENOL SODIUM
     Dosage: UNK

REACTIONS (6)
  - Nausea [Unknown]
  - Atrial fibrillation [Unknown]
  - Lip infection [Unknown]
  - Lymphoma [Unknown]
  - Fall [Unknown]
  - Lip injury [Unknown]

NARRATIVE: CASE EVENT DATE: 20170215
